FAERS Safety Report 4723925-6 (Version None)
Quarter: 2005Q3

REPORT INFORMATION
  Report Type: 
  Country: None (occurrence: None)
  Receive Date: 20050722
  Receipt Date: 20050707
  Transmission Date: 20060218
  Serious: Yes (Other)
  Sender: FDA-Public Use
  Company Number: EM2005-0337

PATIENT
  Age: 52 Year
  Sex: Male

DRUGS (8)
  1. PROLEUKIN [Suspect]
     Indication: HIV INFECTION
     Dosage: 4.5 MU, Q12H
     Dates: start: 19941101, end: 20010901
  2. PROLEUKIN [Suspect]
     Indication: HIV INFECTION
     Dosage: 4.5 MU, Q12H
     Dates: start: 20040417, end: 20040417
  3. PROLEUKIN [Suspect]
     Indication: HIV INFECTION
     Dosage: 4.5 MU, Q12H
     Dates: start: 20040917, end: 20040917
  4. LAMIVUDINE (BETAMETHASONE VALERATE) [Concomitant]
  5. ZIDOVUDINE [Concomitant]
  6. LOPINAVIR (LOPINAVIR) [Concomitant]
  7. RITONAVIR (RITONAVIR) [Concomitant]
  8. TENOFOVIR (TENOFOVIR) [Concomitant]

REACTIONS (4)
  - INTUSSUSCEPTION [None]
  - NON-HODGKIN'S LYMPHOMA [None]
  - SMALL INTESTINAL OBSTRUCTION [None]
  - WOUND INFECTION [None]
